FAERS Safety Report 10600374 (Version 2)
Quarter: 2015Q3

REPORT INFORMATION
  Report Type: Spontaneous
  Country: CA (occurrence: CA)
  Receive Date: 20141124
  Receipt Date: 20150915
  Transmission Date: 20151125
  Serious: Yes (Other)
  Sender: FDA-Public Use
  Company Number: CA-AMGEN-CANSP2014090485

PATIENT
  Age: 52 Year
  Sex: Female

DRUGS (6)
  1. XELJANZ [Concomitant]
     Active Substance: TOFACITINIB CITRATE
     Indication: RHEUMATOID ARTHRITIS
     Dosage: 5 MG, BID
     Route: 048
     Dates: start: 20141109
  2. METHOTREXATE [Concomitant]
     Active Substance: METHOTREXATE
     Dosage: UNK
     Route: 065
  3. ACTEMRA [Suspect]
     Active Substance: TOCILIZUMAB
     Indication: RHEUMATOID ARTHRITIS
     Dosage: UNK
     Route: 065
     Dates: end: 2014
  4. TRAMADOL HCL [Concomitant]
     Active Substance: TRAMADOL HYDROCHLORIDE
     Dosage: 50 MG, UNK
     Route: 048
  5. ENBREL [Suspect]
     Active Substance: ETANERCEPT
     Indication: RHEUMATOID ARTHRITIS
     Dosage: UNK
     Route: 065
  6. APO RABEPRAZOLE [Concomitant]
     Dosage: 20 MG, UNK

REACTIONS (11)
  - Joint range of motion decreased [Unknown]
  - Abdominal tenderness [Unknown]
  - Drug ineffective [Unknown]
  - Pain in extremity [Unknown]
  - Fatigue [Unknown]
  - Arthralgia [Unknown]
  - Sleep disorder [Unknown]
  - Musculoskeletal stiffness [Unknown]
  - Groin pain [Unknown]
  - Rheumatoid arthritis [Unknown]
  - Peripheral swelling [Unknown]
